FAERS Safety Report 6505850-3 (Version None)
Quarter: 2009Q4

REPORT INFORMATION
  Report Type: 
  Country: None (occurrence: None)
  Receive Date: 20091218
  Receipt Date: 20091208
  Transmission Date: 20100525
  Serious: Yes (Hospitalization)
  Sender: FDA-Public Use
  Company Number: US-ELI_LILLY_AND_COMPANY-US200910005362

PATIENT
  Age: 17 Year
  Sex: Male
  Weight: 137.42 kg

DRUGS (8)
  1. STRATTERA [Suspect]
     Indication: ATTENTION DEFICIT/HYPERACTIVITY DISORDER
     Dosage: UNK, UNKNOWN
     Route: 065
     Dates: start: 20080401
  2. STRATTERA [Suspect]
     Dosage: 60 MG, DAILY (1/D)
     Route: 048
     Dates: start: 20090522, end: 20091019
  3. STRATTERA [Suspect]
     Dosage: 40 MG, DAILY (1/D)
     Route: 048
     Dates: start: 20091019
  4. EFFEXOR [Concomitant]
     Indication: ATTENTION DEFICIT/HYPERACTIVITY DISORDER
     Dosage: 150 MG, DAILY (1/D)
     Route: 048
     Dates: start: 20090915
  5. RISPERDAL [Concomitant]
     Indication: DEPRESSION
     Dosage: 1 MG, DAILY (1/D)
     Route: 065
     Dates: start: 20091019
  6. LORAZEPAM [Concomitant]
     Dosage: UNK, UNKNOWN
     Route: 065
  7. CELEXA [Concomitant]
     Dosage: UNK, UNKNOWN
     Route: 065
  8. WELLBUTRIN [Concomitant]
     Dosage: UNK, UNKNOWN
     Route: 065

REACTIONS (3)
  - ALANINE AMINOTRANSFERASE INCREASED [None]
  - ASPARTATE AMINOTRANSFERASE INCREASED [None]
  - HOSPITALISATION [None]
